FAERS Safety Report 21735315 (Version 1)
Quarter: 2022Q4

REPORT INFORMATION
  Report Type: Spontaneous
  Country: US (occurrence: US)
  Receive Date: 20221215
  Receipt Date: 20221215
  Transmission Date: 20230112
  Serious: Yes (Hospitalization)
  Sender: FDA-Public Use
  Company Number: US-PFIZER INC-202201372740

PATIENT
  Age: 81 Year
  Sex: Male
  Weight: 63.41 kg

DRUGS (1)
  1. VYNDAMAX [Suspect]
     Active Substance: TAFAMIDIS
     Dosage: 61 MG, 1X/DAY
     Route: 048
     Dates: start: 202204

REACTIONS (3)
  - Hernia repair [Unknown]
  - Cough [Unknown]
  - Body height decreased [Unknown]
